FAERS Safety Report 23386567 (Version 2)
Quarter: 2024Q1

REPORT INFORMATION
  Report Type: Spontaneous
  Country: US (occurrence: US)
  Receive Date: 20240110
  Receipt Date: 20240206
  Transmission Date: 20240410
  Serious: No
  Sender: FDA-Public Use
  Company Number: US-OPELLA-2023OHG021134

PATIENT
  Age: 90 Year
  Sex: Female

DRUGS (2)
  1. ALLEGRA ALLERGY [Suspect]
     Active Substance: FEXOFENADINE HYDROCHLORIDE
     Dosage: UNK
  2. FAMOTIDINE [Suspect]
     Active Substance: FAMOTIDINE
     Indication: Hypersensitivity
     Dosage: UNK

REACTIONS (3)
  - Dysuria [Unknown]
  - Dehydration [Unknown]
  - Rash macular [Unknown]
